FAERS Safety Report 13888515 (Version 1)
Quarter: 2017Q3

REPORT INFORMATION
  Report Type: Spontaneous
  Country: JP (occurrence: JP)
  Receive Date: 20170822
  Receipt Date: 20170822
  Transmission Date: 20171127
  Serious: Yes (Death, Disabling)
  Sender: FDA-Public Use
  Company Number: PHJP2017JP026134

PATIENT
  Age: 78 Year
  Sex: Female

DRUGS (1)
  1. TASIGNA [Suspect]
     Active Substance: NILOTINIB
     Indication: CHRONIC MYELOID LEUKAEMIA
     Route: 048
     Dates: start: 20121211, end: 201707

REACTIONS (2)
  - Dementia Alzheimer^s type [Unknown]
  - Death [Fatal]

NARRATIVE: CASE EVENT DATE: 201611
